FAERS Safety Report 7546067-3 (Version None)
Quarter: 2011Q2

REPORT INFORMATION
  Report Type: 
  Country: None (occurrence: None)
  Receive Date: 20110614
  Receipt Date: 20110603
  Transmission Date: 20111010
  Serious: Yes (Other)
  Sender: FDA-Public Use
  Company Number: PHHY2011DE43507

PATIENT
  Sex: Female

DRUGS (6)
  1. HEXAL [Concomitant]
     Dosage: UNK
  2. GILENYA [Suspect]
     Indication: MULTIPLE SCLEROSIS
     Dosage: 0.5 MG, PER DAY
     Route: 048
     Dates: start: 20110419
  3. ERGOCALCIFEROL [Concomitant]
     Dosage: 1000 IU, UNK
     Route: 048
     Dates: start: 20110419
  4. CITALOPRAM [Concomitant]
     Dosage: 20 MG, UNK
     Route: 048
     Dates: start: 20100324
  5. MCP [Concomitant]
     Dosage: 100 MG, UNK
     Route: 048
     Dates: start: 20110420
  6. AMANTADINE HCL [Concomitant]
     Dosage: 100 MG, UNK
     Route: 048
     Dates: start: 20100324

REACTIONS (10)
  - LIVER INJURY [None]
  - VARICELLA VIRUS TEST POSITIVE [None]
  - LYMPHOPENIA [None]
  - HYPERTENSION [None]
  - NAUSEA [None]
  - GAMMA-GLUTAMYLTRANSFERASE INCREASED [None]
  - ASPARTATE AMINOTRANSFERASE INCREASED [None]
  - ALANINE AMINOTRANSFERASE INCREASED [None]
  - HEADACHE [None]
  - LEUKOPENIA [None]
